FAERS Safety Report 6084818-8 (Version None)
Quarter: 2009Q1

REPORT INFORMATION
  Report Type: 
  Country: None (occurrence: None)
  Receive Date: 20090218
  Receipt Date: 20090209
  Transmission Date: 20090719
  Serious: Yes (Death, Other)
  Sender: FDA-Public Use
  Company Number: 174642

PATIENT
  Age: 55 Year
  Sex: Male

DRUGS (2)
  1. ATROPINE SULFATE [Suspect]
     Indication: STRESS ECHOCARDIOGRAM
     Dosage: .5 MG
  2. DOBUTAMINE HCL [Suspect]
     Indication: STRESS ECHOCARDIOGRAM
     Dosage: 50 MCG/KG/MIN

REACTIONS (11)
  - ANEURYSM RUPTURED [None]
  - BLOOD PRESSURE DECREASED [None]
  - BLOOD PRESSURE INCREASED [None]
  - BLOOD PRESSURE SYSTOLIC INSPIRATORY DECREASED [None]
  - HEART RATE DECREASED [None]
  - HEART RATE INCREASED [None]
  - LOSS OF CONSCIOUSNESS [None]
  - PARADOXICAL DRUG REACTION [None]
  - PERITONEAL HAEMATOMA [None]
  - RETROPERITONEAL HAEMATOMA [None]
  - SPLENIC ARTERY ANEURYSM [None]
